FAERS Safety Report 5284597-8 (Version None)
Quarter: 2007Q1

REPORT INFORMATION
  Report Type: 
  Country: None (occurrence: None)
  Receive Date: 20061229
  Receipt Date: 20060303
  Transmission Date: 20070707
  Serious: Yes (Death)
  Sender: FDA-Public Use
  Company Number: PHEH2005US12124

PATIENT
  Age: 29 Year
  Sex: Male

DRUGS (4)
  1. CLOZARIL [Suspect]
     Indication: PSYCHOTIC DISORDER
     Dosage: SEE IMAGE
     Dates: end: 20030601
  2. CLOZARIL [Suspect]
     Indication: PSYCHOTIC DISORDER
     Dosage: SEE IMAGE
     Dates: start: 20030601, end: 20040301
  3. CLOZARIL [Suspect]
     Indication: PSYCHOTIC DISORDER
     Dosage: SEE IMAGE
     Dates: start: 20030501
  4. CLOZARIL [Suspect]
     Indication: PSYCHOTIC DISORDER
     Dosage: SEE IMAGE
     Dates: start: 20040301

REACTIONS (2)
  - LIPIDS ABNORMAL [None]
  - PULMONARY EMBOLISM [None]
